FAERS Safety Report 7733287-8 (Version None)
Quarter: 2011Q3

REPORT INFORMATION
  Report Type: 
  Country: None (occurrence: None)
  Receive Date: 20110907
  Receipt Date: 20110902
  Transmission Date: 20111222
  Serious: Yes (Death, Hospitalization)
  Sender: FDA-Public Use
  Company Number: TW-BAYER-2011-068570

PATIENT
  Age: 55 Year
  Sex: Male
  Weight: 53 kg

DRUGS (34)
  1. ULTRACET [Concomitant]
     Indication: MYALGIA
     Dosage: 1 TAB
     Route: 048
     Dates: start: 20110803, end: 20110805
  2. DIMETICONE [Concomitant]
     Dosage: DAILY DOSE 40 MG
     Route: 048
     Dates: start: 20110819, end: 20110819
  3. I.V. SOLUTIONS [Concomitant]
     Dosage: DAILY DOSE 800 ML
     Route: 042
     Dates: start: 20110820, end: 20110822
  4. PRIMPERAN TAB [Concomitant]
     Dosage: DAILY DOSE 30 MG
     Route: 042
     Dates: start: 20110809, end: 20110815
  5. TRIAMCINOLONE/ANTIBIOTIC [GRAMICID,NEOMYC SULF,NYSTATIN,TRIAMCINOL [Concomitant]
     Indication: SKIN EXFOLIATION
     Dosage: 6 G TUBE PRN
     Route: 061
     Dates: start: 20110711
  6. DIMETICONE [Concomitant]
     Dosage: DAILY DOSE 120 MG
     Route: 048
     Dates: start: 20110819, end: 20110824
  7. MEDROXYPROGESTERONE ACETATE [Concomitant]
     Dosage: DAILY DOSE 500 MG
     Route: 048
     Dates: start: 20110809, end: 20110824
  8. I.V. SOLUTIONS [Concomitant]
     Dosage: DAILY DOSE 400 ML
     Route: 042
     Dates: start: 20110819, end: 20110819
  9. RANITIDINE [Concomitant]
     Indication: DECREASED APPETITE
     Dosage: DAILY DOSE 150 MG
     Route: 048
     Dates: start: 20110816, end: 20110816
  10. TRAMADOL HYDROCHLORIDE [Concomitant]
     Dosage: DAILY DOSE 50 MG
     Route: 030
     Dates: start: 20110821, end: 20110821
  11. NEXAVAR [Suspect]
     Indication: HEPATIC NEOPLASM MALIGNANT
     Dosage: DAILY DOSE 800 MG
     Route: 048
     Dates: start: 20110620, end: 20110710
  12. NEXAVAR [Suspect]
     Dosage: DAILY DOSE 800 MG
     Route: 048
     Dates: start: 20110711, end: 20110731
  13. ULTRACET [Concomitant]
     Indication: ABDOMINAL PAIN
     Dosage: 4/TAB
     Route: 048
     Dates: start: 20110805, end: 20110809
  14. ULTRACET [Concomitant]
     Dosage: 1/TAB
     Route: 048
     Dates: start: 20110813, end: 20110813
  15. FRUCTOSE [Concomitant]
     Indication: DECREASED APPETITE
     Dosage: DAILY DOSE 500 ML
     Dates: start: 20110810, end: 20110818
  16. AMINO ACIDS [Concomitant]
     Indication: DECREASED APPETITE
     Dosage: DAILY DOSE 50 ML
     Route: 042
     Dates: start: 20110805, end: 20110824
  17. I.V. SOLUTIONS [Concomitant]
     Dosage: DAILY DOSE 800 ML
     Route: 042
     Dates: start: 20110810, end: 20110818
  18. ULTRACET [Concomitant]
     Dosage: 8/TAB
     Route: 048
     Dates: start: 20110815, end: 20110818
  19. RANITIDINE [Concomitant]
     Dosage: DAILY DOSE 450 MG
     Route: 048
     Dates: start: 20110817, end: 20110823
  20. TRAMADOL HYDROCHLORIDE [Concomitant]
     Dosage: DAILY DOSE 50 MG
     Route: 030
     Dates: start: 20110815, end: 20110815
  21. CORTICOSTEROIDS [Concomitant]
     Dosage: UNK
     Route: 061
     Dates: start: 20110711
  22. FENTANYL-100 [Concomitant]
     Indication: MYALGIA
  23. ULTRACET [Concomitant]
     Dosage: 8/TAB
     Route: 048
     Dates: start: 20110809, end: 20110811
  24. DIMETICONE [Concomitant]
     Indication: ABDOMINAL DISTENSION
     Dosage: DAILY DOSE 120 MG
     Route: 048
     Dates: start: 20110801, end: 20110809
  25. I.V. SOLUTIONS [Concomitant]
     Indication: DECREASED APPETITE
     Dosage: DAILY DOSE 400 ML
     Route: 042
     Dates: start: 20110809, end: 20110809
  26. TRAMADOL HYDROCHLORIDE [Concomitant]
     Indication: ABDOMINAL PAIN
     Dosage: DAILY DOSE 50 MG
     Route: 030
     Dates: start: 20110808, end: 20110809
  27. PRIMPERAN TAB [Concomitant]
     Dosage: DAILY DOSE 30 MG
     Route: 042
     Dates: start: 20110819, end: 20110819
  28. FENTANYL-100 [Concomitant]
     Indication: ABDOMINAL PAIN
     Dosage: 25 UG/H Q3 DAY
     Route: 062
     Dates: start: 20110809, end: 20110824
  29. ULTRACET [Concomitant]
     Dosage: 2/TAB
     Route: 048
     Dates: start: 20110814, end: 20110814
  30. RANITIDINE [Concomitant]
     Indication: PROPHYLAXIS
     Dosage: DAILY DOSE 450 MG
     Route: 048
     Dates: start: 20110804, end: 20110816
  31. TRAMADOL HYDROCHLORIDE [Concomitant]
     Indication: MYALGIA
     Dosage: DAILY DOSE 100 MG
     Route: 030
     Dates: start: 20110815, end: 20110815
  32. MEDROXYPROGESTERONE ACETATE [Concomitant]
     Indication: DECREASED APPETITE
     Dosage: DAILY DOSE 1000 MG
     Route: 048
     Dates: start: 20110809, end: 20110809
  33. I.V. SOLUTIONS [Concomitant]
     Dosage: DAILY DOSE 800 ML
     Route: 042
     Dates: start: 20110823, end: 20110824
  34. PRIMPERAN TAB [Concomitant]
     Indication: DECREASED APPETITE
     Dosage: DAILY DOSE 10 MG
     Route: 042
     Dates: start: 20110809, end: 20110809

REACTIONS (2)
  - HEPATIC FAILURE [None]
  - ASCITES [None]
